FAERS Safety Report 5194038-7 (Version None)
Quarter: 2006Q4

REPORT INFORMATION
  Report Type: 
  Country: None (occurrence: None)
  Receive Date: 20061228
  Receipt Date: 20061219
  Transmission Date: 20070319
  Serious: Yes (Hospitalization, Other)
  Sender: FDA-Public Use
  Company Number: CA-ELI_LILLY_AND_COMPANY-CA200612003886

PATIENT
  Sex: Female

DRUGS (9)
  1. FORTEO [Suspect]
     Indication: OSTEOPOROSIS
     Dosage: 20 UG, DAILY (1/D)
     Route: 058
     Dates: start: 20061120, end: 20061215
  2. LOSEC [Concomitant]
  3. QUININE SULFATE [Concomitant]
  4. MELOXICAM [Concomitant]
  5. APO-LORAZEPAM [Concomitant]
  6. ADALAT [Concomitant]
  7. TUMS [Concomitant]
     Indication: MINERAL SUPPLEMENTATION
  8. VITAMIN D [Concomitant]
  9. GLUCOSAMINE W/CHONDROITIN [Concomitant]

REACTIONS (1)
  - MYOCARDIAL INFARCTION [None]
